FAERS Safety Report 4947060-7 (Version None)
Quarter: 2006Q1

REPORT INFORMATION
  Report Type: 
  Country: None (occurrence: None)
  Receive Date: 20060317
  Receipt Date: 20060131
  Transmission Date: 20060701
  Serious: Yes (Life-Threatening, Hospitalization, Disabling)
  Sender: FDA-Public Use
  Company Number: JP-BRISTOL-MYERS SQUIBB COMPANY-13268834

PATIENT
  Age: 80 Year
  Sex: Female

DRUGS (6)
  1. FUNGIZONE [Suspect]
     Indication: OESOPHAGEAL CANDIDIASIS
     Route: 048
     Dates: start: 20060116, end: 20060117
  2. NORVASC [Suspect]
     Route: 048
  3. LANIRAPID [Suspect]
     Route: 048
  4. LANSOPRAZOLE [Suspect]
     Route: 048
  5. EMPECID [Suspect]
     Route: 062
  6. THYRADIN S [Suspect]
     Route: 048

REACTIONS (5)
  - ERYTHEMA [None]
  - PETECHIAE [None]
  - PURPURA [None]
  - SKIN EXFOLIATION [None]
  - URTICARIA [None]
